FAERS Safety Report 21380746 (Version 1)
Quarter: 2022Q3

REPORT INFORMATION
  Report Type: Spontaneous
  Country: US (occurrence: None)
  Receive Date: 20220923
  Receipt Date: 20220923
  Transmission Date: 20221026
  Serious: Yes (Hospitalization)
  Sender: FDA-Public Use
  Company Number: None

PATIENT
  Sex: Female

DRUGS (3)
  1. DOFETILIDE [Suspect]
     Active Substance: DOFETILIDE
     Indication: Pulmonary fibrosis
     Dosage: FREQUENCY : EVERY 12 HOURS;?
     Route: 048
     Dates: start: 20220819
  2. DOFETILIDE [Suspect]
     Active Substance: DOFETILIDE
     Indication: Interstitial lung disease
  3. DOFETILIDE [Suspect]
     Active Substance: DOFETILIDE
     Indication: Atrial fibrillation

REACTIONS (3)
  - Cardiac disorder [None]
  - Lung disorder [None]
  - Disease complication [None]
